FAERS Safety Report 16208025 (Version 9)
Quarter: 2020Q1

REPORT INFORMATION
  Report Type: Report from Study
  Country: JP (occurrence: JP)
  Receive Date: 20190417
  Receipt Date: 20200302
  Transmission Date: 20200409
  Serious: Yes (Death, Life-Threatening, Other)
  Sender: FDA-Public Use
  Company Number: JP-GILEAD-2019-0400776

PATIENT
  Age: 81 Year
  Sex: Female
  Weight: 57.6 kg

DRUGS (27)
  1. THYRADIN S [Concomitant]
     Active Substance: LEVOTHYROXINE SODIUM
     Indication: DISEASE COMPLICATION
     Dosage: 1 DOSAGE FORM, QD (2HOURS AFTER BREAKFAST)
     Route: 048
     Dates: start: 20130222, end: 20190807
  2. MAINTATE [Concomitant]
     Active Substance: BISOPROLOL FUMARATE
     Indication: HYPERTENSION
     Dosage: 1 DOSAGE FORM, QD (AFTER SUPPER)
     Route: 048
     Dates: start: 20190206, end: 20190403
  3. NEUROTROPIN [RABBIT VACCINIA EXTRACT] [Concomitant]
     Active Substance: ORYCTOLAGUS CUNICULUS SKIN
     Indication: BACK PAIN
     Dosage: 2 DOSAGE FORM, BID (AFTER BREAKFAST AND SUPPER)
     Route: 048
     Dates: start: 20190220, end: 20190717
  4. STRONGER NEO-MINOPHAGEN C [Concomitant]
     Active Substance: AMMONIUM GLYCYRRHIZATE\CYSTEINE HYDROCHLORIDE\GLYCINE
     Indication: HEPATITIS C
     Dosage: UNK
     Route: 042
  5. ALOSENN [Concomitant]
     Dosage: UNK
     Route: 048
  6. SOFOSBUVIR W/VELPATASVIR [Suspect]
     Active Substance: SOFOSBUVIR\VELPATASVIR
     Indication: HEPATIC CIRRHOSIS
  7. CANDESARTAN. [Concomitant]
     Active Substance: CANDESARTAN
     Indication: HYPERTENSION
     Dosage: 4 MG, QD (AFTER BREAKFAST)
     Route: 048
  8. SULBACILLIN [Concomitant]
     Active Substance: AMPICILLIN SODIUM\SULBACTAM SODIUM
     Indication: STREPTOCOCCAL INFECTION
     Dosage: UNK
     Route: 041
     Dates: start: 20190402, end: 20190404
  9. ALBUMIN [Concomitant]
     Active Substance: ALBUMIN HUMAN
     Indication: HEPATIC CIRRHOSIS
     Dosage: 1 DOSAGE FORM, QD
     Dates: start: 20190402, end: 20190407
  10. LANSOPRAZOLE. [Concomitant]
     Active Substance: LANSOPRAZOLE
     Indication: HEPATIC CIRRHOSIS
     Dosage: UNK
     Dates: start: 20121221, end: 20190703
  11. URSODEOXYCHOLIC ACID [Concomitant]
     Active Substance: URSODIOL
     Indication: HEPATITIS C
     Dosage: 3 DOSAGE FORM, TID (AFTER MEALS)
     Route: 048
  12. RABEPRAZOLE SODIUM. [Concomitant]
     Active Substance: RABEPRAZOLE SODIUM
     Indication: PROPHYLAXIS
     Dosage: 1 DOSAGE FORM, QD (AFTER BREAKFAST)
     Route: 048
  13. SOFOSBUVIR W/VELPATASVIR [Suspect]
     Active Substance: SOFOSBUVIR\VELPATASVIR
     Indication: HEPATITIS C
     Dosage: QD, ADMINISTRATED IN THE MORNING
     Route: 048
     Dates: start: 20190401, end: 20190402
  14. CALONAL [Concomitant]
     Active Substance: ACETAMINOPHEN
     Indication: PYREXIA
     Dosage: 2 DOSAGE FORM, TID (AFTER MEALS)
     Route: 048
     Dates: start: 20190205, end: 20190817
  15. CALONAL [Concomitant]
     Active Substance: ACETAMINOPHEN
     Dosage: UNK UNK, PRN
     Route: 048
  16. U-PASTA [Concomitant]
     Indication: DISEASE COMPLICATION
     Dosage: UNK
     Route: 061
     Dates: start: 20190327, end: 20190403
  17. ANTEBATE [Concomitant]
     Active Substance: BETAMETHASONE DIPROPIONATE
     Indication: DISEASE COMPLICATION
     Dosage: UNK
     Route: 061
     Dates: start: 20190327, end: 20190403
  18. SPIRONOLACTONE. [Concomitant]
     Active Substance: SPIRONOLACTONE
     Indication: HEPATIC CIRRHOSIS
     Dosage: 2 DOSAGE FORM, QD (AFTER BREAKFAST)
     Route: 048
     Dates: start: 20060914
  19. FUROSEMIDE TAKEDA TEVA [Concomitant]
     Active Substance: FUROSEMIDE
     Indication: HEPATIC CIRRHOSIS
     Dosage: 2 DOSAGE FORM, QD (AFTER BREAKFAST)
     Route: 048
     Dates: start: 20130124
  20. ALBUMIN [Concomitant]
     Active Substance: ALBUMIN HUMAN
     Dosage: UNK
     Route: 041
     Dates: start: 20061214, end: 20190910
  21. FERROUS SULFATE. [Concomitant]
     Active Substance: FERROUS SULFATE
     Dosage: UNK
     Route: 048
     Dates: start: 20190206, end: 20190313
  22. LIVACT [ISOLEUCINE;LEUCINE;VALINE] [Concomitant]
     Indication: HEPATIC CIRRHOSIS
     Dosage: 3 DOSAGE FORM, TID (AFTER MEALS)
     Route: 048
     Dates: end: 20190703
  23. PROMAC [POLAPREZINC] [Concomitant]
     Active Substance: POLAPREZINC
     Indication: HEPATIC CIRRHOSIS
     Dosage: 1 DOSAGE FORM, BID (AFTER BREAKFAST, BEFORE BEDTIME)
     Route: 048
     Dates: start: 20060112, end: 20190703
  24. SULBACILLIN [Concomitant]
     Active Substance: AMPICILLIN SODIUM\SULBACTAM SODIUM
     Indication: PYREXIA
  25. MECOBALAMIN [Concomitant]
     Active Substance: METHYLCOBALAMIN
     Indication: NEUROPATHY PERIPHERAL
     Dosage: 1 DOSAGE FORM, TID (AFTER MEALS)
     Route: 048
     Dates: start: 20130220, end: 20190717
  26. KAYWAN [Concomitant]
     Indication: HEPATIC CIRRHOSIS
     Dosage: 2 DOSAGE FORM, BID (AFTER BREAKFAST AND SUPPER)
     Route: 048
     Dates: start: 20170105, end: 20190703
  27. LOQOA [Concomitant]
     Dosage: UNK (PUT ON WAIST)
     Route: 062
     Dates: start: 20190220, end: 20190318

REACTIONS (8)
  - Gastric haemorrhage [Recovered/Resolved]
  - Cryptococcosis [Fatal]
  - Sepsis [Recovered/Resolved]
  - Interstitial lung disease [Not Recovered/Not Resolved]
  - Sinus arrest [Recovered/Resolved]
  - Cellulitis [Recovered/Resolved]
  - Renal impairment [Not Recovered/Not Resolved]
  - Cardiac failure [Not Recovered/Not Resolved]

NARRATIVE: CASE EVENT DATE: 20190401
